FAERS Safety Report 7154638-1 (Version None)
Quarter: 2010Q4

REPORT INFORMATION
  Report Type: 
  Country: None (occurrence: None)
  Receive Date: 20101214
  Receipt Date: 20091113
  Transmission Date: 20110411
  Serious: No
  Sender: FDA-Public Use
  Company Number: US-AMGEN-KDL371527

PATIENT

DRUGS (7)
  1. ENBREL [Suspect]
     Indication: ANKYLOSING SPONDYLITIS
     Dosage: 50 MG, QWK
     Route: 058
     Dates: start: 20090914
  2. ERGOCALCIFEROL [Concomitant]
  3. CYCLOBENZAPRINE HCL [Concomitant]
  4. PREDNISONE [Concomitant]
  5. FLUTICASONE/SALMETEROL [Concomitant]
  6. ACETAMINOPHEN [Concomitant]
  7. HYDROCODONE [Concomitant]

REACTIONS (1)
  - MUSCLE SPASMS [None]
